FAERS Safety Report 21375679 (Version 1)
Quarter: 2022Q3

REPORT INFORMATION
  Report Type: Report from Study
  Country: CO (occurrence: CO)
  Receive Date: 20220926
  Receipt Date: 20220926
  Transmission Date: 20221027
  Serious: Yes (Hospitalization, Other)
  Sender: FDA-Public Use
  Company Number: CO-ASTELLAS-2022US034010

PATIENT
  Age: 68 Year
  Sex: Male
  Weight: 60 kg

DRUGS (2)
  1. TACROLIMUS [Suspect]
     Active Substance: TACROLIMUS
     Indication: Renal transplant
     Route: 048
     Dates: start: 20220730
  2. TACROLIMUS [Suspect]
     Active Substance: TACROLIMUS
     Route: 048

REACTIONS (15)
  - Urinary tract infection [Recovered/Resolved]
  - Renal transplant failure [Unknown]
  - Urinary tract infection [Unknown]
  - Immunosuppressant drug level decreased [Unknown]
  - Diarrhoea [Unknown]
  - Asthenia [Unknown]
  - Gait disturbance [Unknown]
  - Hypoglycaemia [Unknown]
  - Dehydration [Unknown]
  - Abdominal pain [Unknown]
  - Procedural pain [Unknown]
  - Lip swelling [Unknown]
  - Peripheral swelling [Unknown]
  - Anuria [Unknown]
  - Dysstasia [Unknown]

NARRATIVE: CASE EVENT DATE: 20220811
